FAERS Safety Report 19418741 (Version 1)
Quarter: 2021Q2

REPORT INFORMATION
  Report Type: Report from Study
  Country: US (occurrence: US)
  Receive Date: 20210615
  Receipt Date: 20210615
  Transmission Date: 20210717
  Serious: Yes (Other)
  Sender: FDA-Public Use
  Company Number: US-GLAXOSMITHKLINE-US2021AMR054114

PATIENT
  Age: 65 Year
  Sex: Male

DRUGS (2)
  1. PLAQUENIL [Suspect]
     Active Substance: HYDROXYCHLOROQUINE SULFATE
     Indication: PRODUCT USED FOR UNKNOWN INDICATION
     Dosage: 200 MG, WE
     Dates: start: 202003
  2. BELANTAMAB MAFODOTIN. [Suspect]
     Active Substance: BELANTAMAB MAFODOTIN
     Indication: PRODUCT USED FOR UNKNOWN INDICATION
     Dosage: UNK

REACTIONS (9)
  - Eye pain [Recovered/Resolved]
  - Keratopathy [Recovered/Resolved]
  - Cataract [Recovered/Resolved]
  - Visual acuity reduced [Recovered/Resolved]
  - Corneal disorder [Recovered/Resolved]
  - Photophobia [Recovered/Resolved]
  - Dry eye [Recovered/Resolved]
  - Ocular discomfort [Recovered/Resolved]
  - Night blindness [Recovered/Resolved]

NARRATIVE: CASE EVENT DATE: 20210219
